FAERS Safety Report 22295768 (Version 3)
Quarter: 2023Q2

REPORT INFORMATION
  Report Type: Spontaneous
  Country: US (occurrence: US)
  Receive Date: 20230508
  Receipt Date: 20230515
  Transmission Date: 20230722
  Serious: Yes (Other)
  Sender: FDA-Public Use
  Company Number: US-009507513-2304USA008535

PATIENT
  Sex: Female
  Weight: 89.9 kg

DRUGS (9)
  1. JANUVIA [Suspect]
     Active Substance: SITAGLIPTIN PHOSPHATE
     Dosage: 100 MILLIGRAM, QD
     Route: 048
     Dates: start: 20161010
  2. FARXIGA [Concomitant]
     Active Substance: DAPAGLIFLOZIN PROPANEDIOL
     Dosage: 1 TABLET ORALLY, ONCE A DAY
     Route: 048
     Dates: start: 2020
  3. PIOGLITAZONE [Concomitant]
     Active Substance: PIOGLITAZONE
     Dosage: 1 TABLET ORALLY, ONCE A DAY
     Route: 048
  4. OMEPRAZOLE [Concomitant]
     Active Substance: OMEPRAZOLE
     Dosage: 1 CAPSULE ORALLY, ONCE A DAY
     Route: 048
  5. ACETAMINOPHEN\HYDROCODONE [Concomitant]
     Active Substance: ACETAMINOPHEN\HYDROCODONE
     Dosage: 1 TABLET AS NEEDED ORALLY, EVERY 6 HOURS.
     Route: 048
  6. MECLIZINE HYDROCHLORIDE [Concomitant]
     Active Substance: MECLIZINE HYDROCHLORIDE
     Indication: Dizziness
     Dosage: 1 TABLET AS NEEDED ORALLY, EVERY 6 HOURS.
     Route: 048
  7. MECLIZINE HYDROCHLORIDE [Concomitant]
     Active Substance: MECLIZINE HYDROCHLORIDE
     Indication: Vertigo
  8. GABAPENTIN [Concomitant]
     Active Substance: GABAPENTIN
     Dosage: 5 CAPSULES ORALLY, DAILY
     Route: 048
  9. DIFLUCAN [Concomitant]
     Active Substance: FLUCONAZOLE
     Indication: Fungal infection
     Dosage: 1 TABLET ^STAT^ MAY REPEAT IN 3 DAYS
     Route: 048

REACTIONS (8)
  - Chronic kidney disease [Unknown]
  - Polyneuropathy [Unknown]
  - Diabetic complication [Unknown]
  - Glycosylated haemoglobin increased [Not Recovered/Not Resolved]
  - Hypertension [Unknown]
  - Ill-defined disorder [Unknown]
  - Inability to afford medication [Unknown]
  - Product dose omission issue [Unknown]

NARRATIVE: CASE EVENT DATE: 20220101
